FAERS Safety Report 6672139-1 (Version None)
Quarter: 2010Q2

REPORT INFORMATION
  Report Type: 
  Country: None (occurrence: None)
  Receive Date: 20100407
  Receipt Date: 20100407
  Transmission Date: 20101027
  Serious: Yes (Other)
  Sender: FDA-Public Use
  Company Number: None

PATIENT
  Age: 37 Year
  Sex: Male
  Weight: 99.7913 kg

DRUGS (1)
  1. ANDROGEL [Suspect]
     Indication: BLOOD TESTOSTERONE DECREASED
     Dosage: DAILY TOP; CURRENT USE
     Route: 061
     Dates: start: 20090801, end: 20100406

REACTIONS (3)
  - ANGER [None]
  - HOSTILITY [None]
  - HYPERTONIC BLADDER [None]
